FAERS Safety Report 7046958-6 (Version None)
Quarter: 2010Q4

REPORT INFORMATION
  Report Type: 
  Country: None (occurrence: None)
  Receive Date: 20101015
  Receipt Date: 20101011
  Transmission Date: 20110411
  Serious: Yes (Congenital Anomaly, Other)
  Sender: FDA-Public Use
  Company Number: GB-BRISTOL-MYERS SQUIBB COMPANY-15326614

PATIENT
  Sex: Male
  Weight: 3 kg

DRUGS (4)
  1. CEPHRADINE [Suspect]
     Route: 064
  2. CONCERTA [Suspect]
     Route: 064
  3. PETHIDINE [Suspect]
     Dosage: DURATION:1DAY
     Route: 064
     Dates: start: 20100626, end: 20100626
  4. ANTIBIOTIC [Suspect]

REACTIONS (1)
  - PYELOCALIECTASIS [None]
